FAERS Safety Report 8477454-7 (Version None)
Quarter: 2012Q2

REPORT INFORMATION
  Report Type: 
  Country: None (occurrence: None)
  Receive Date: 20120629
  Receipt Date: 20120622
  Transmission Date: 20120825
  Serious: Yes (Hospitalization)
  Sender: FDA-Public Use
  Company Number: PHHY2012FR054139

PATIENT
  Age: 52 Year
  Sex: Male

DRUGS (4)
  1. OMEPRAZOLE [Suspect]
     Dosage: 1 DF, DAILY
     Route: 048
  2. NEUPOGEN [Suspect]
     Dates: end: 20120302
  3. VINBLASTINE SULFATE [Suspect]
     Dates: start: 20111201
  4. VALSARTAN [Suspect]
     Indication: HYPERTENSION
     Dosage: 80 MG, DAILY
     Dates: start: 20111201

REACTIONS (6)
  - PARTIAL SEIZURES [None]
  - HYPERTENSION [None]
  - LOSS OF CONSCIOUSNESS [None]
  - TONGUE BITING [None]
  - SYNCOPE [None]
  - HYPOREFLEXIA [None]
